FAERS Safety Report 19944689 (Version 1)
Quarter: 2021Q4

REPORT INFORMATION
  Report Type: Spontaneous
  Country: PT (occurrence: PT)
  Receive Date: 20211012
  Receipt Date: 20211012
  Transmission Date: 20220303
  Serious: Yes (Hospitalization)
  Sender: FDA-Public Use
  Company Number: PT-MYLANLABS-2021M1071844

PATIENT

DRUGS (11)
  1. SERTRALINE HYDROCHLORIDE [Suspect]
     Active Substance: SERTRALINE HYDROCHLORIDE
     Indication: Product used for unknown indication
     Dosage: 50 MILLIGRAM, QD
     Route: 064
  2. MIRTAZAPINE [Suspect]
     Active Substance: MIRTAZAPINE
     Indication: Product used for unknown indication
     Dosage: 15 MILLIGRAM, QD
     Route: 064
  3. QUETIAPINE [Suspect]
     Active Substance: QUETIAPINE
     Indication: Product used for unknown indication
     Dosage: UP TO 25MG AT BEDTIME
     Route: 064
  4. QUETIAPINE [Suspect]
     Active Substance: QUETIAPINE
     Dosage: UP TO 50MG, DAY
     Route: 064
  5. QUETIAPINE [Suspect]
     Active Substance: QUETIAPINE
     Dosage: TITRATED TO 100MG
     Route: 064
  6. ASPIRIN [Suspect]
     Active Substance: ASPIRIN
     Indication: Product used for unknown indication
     Dosage: 150 MILLIGRAM, QD
     Route: 064
  7. MEXAZOLAM [Concomitant]
     Active Substance: MEXAZOLAM
     Dosage: 1 MILLIGRAM, QD
  8. CITALOPRAM [Concomitant]
     Active Substance: CITALOPRAM HYDROBROMIDE
     Dosage: 20 MILLIGRAM
  9. CITALOPRAM [Concomitant]
     Active Substance: CITALOPRAM HYDROBROMIDE
     Dosage: 40 MILLIGRAM, QD
  10. METHYLDOPA [Concomitant]
     Active Substance: METHYLDOPA
     Dosage: 250 MILLIGRAM, BID
  11. FOLIC ACID [Concomitant]
     Active Substance: FOLIC ACID
     Dosage: 5 MILLIGRAM, QD

REACTIONS (2)
  - Hospitalisation [Unknown]
  - Foetal exposure during pregnancy [Recovered/Resolved]

NARRATIVE: CASE EVENT DATE: 20210101
